FAERS Safety Report 15197458 (Version 1)
Quarter: 2018Q4

REPORT INFORMATION
  Report Type: Spontaneous
  Country: US (occurrence: US)
  Receive Date: 20180725
  Receipt Date: 20180725
  Transmission Date: 20190204
  Serious: No
  Sender: FDA-Public Use
  Company Number: US-ABBVIE-18S-163-2359652-00

PATIENT
  Sex: Female

DRUGS (4)
  1. LEVOTHYROXINE. [Suspect]
     Active Substance: LEVOTHYROXINE
     Indication: PRODUCT USED FOR UNKNOWN INDICATION
     Route: 048
  2. FERTILITY MEDICATION [Suspect]
     Active Substance: UNSPECIFIED INGREDIENT
     Indication: INFERTILITY
     Route: 065
  3. VITAMIN D [Concomitant]
     Active Substance: CHOLECALCIFEROL
     Indication: PRODUCT USED FOR UNKNOWN INDICATION
  4. TIROSINT [Suspect]
     Active Substance: LEVOTHYROXINE SODIUM
     Indication: PRODUCT USED FOR UNKNOWN INDICATION
     Route: 048

REACTIONS (10)
  - Exposure during pregnancy [Unknown]
  - Uterine leiomyoma [Unknown]
  - Weight increased [Unknown]
  - Drug interaction [Unknown]
  - Ovulation disorder [Unknown]
  - Therapeutic response unexpected [Unknown]
  - Pregnancy [Unknown]
  - Exercise tolerance increased [Unknown]
  - Drug level below therapeutic [Unknown]
  - Loss of personal independence in daily activities [Unknown]
